FAERS Safety Report 8145300-7 (Version None)
Quarter: 2012Q1

REPORT INFORMATION
  Report Type: 
  Country: None (occurrence: None)
  Receive Date: 20120217
  Receipt Date: 20120210
  Transmission Date: 20120608
  Serious: Yes (Hospitalization, Other)
  Sender: FDA-Public Use
  Company Number: US-US-EMD SERONO, INC.-7092867

PATIENT
  Sex: Female

DRUGS (2)
  1. VITAMIN D [Concomitant]
     Dates: start: 20111001
  2. REBIF [Suspect]
     Indication: MULTIPLE SCLEROSIS
     Route: 058
     Dates: start: 20101027

REACTIONS (4)
  - DIZZINESS [None]
  - INFLUENZA [None]
  - MULTIPLE SCLEROSIS RELAPSE [None]
  - LOSS OF CONSCIOUSNESS [None]
